FAERS Safety Report 7029865-4 (Version None)
Quarter: 2010Q4

REPORT INFORMATION
  Report Type: 
  Country: None (occurrence: None)
  Receive Date: 20101006
  Receipt Date: 20100929
  Transmission Date: 20110411
  Serious: No
  Sender: FDA-Public Use
  Company Number: US-BIOGENIDEC-2010BI033987

PATIENT
  Age: 51 Year
  Sex: Female

DRUGS (2)
  1. AVONEX [Suspect]
     Indication: MULTIPLE SCLEROSIS
     Route: 030
     Dates: start: 20020920
  2. FLU VACCINE [Concomitant]
     Dates: start: 20100922, end: 20100922

REACTIONS (4)
  - DECREASED APPETITE [None]
  - INFLUENZA LIKE ILLNESS [None]
  - LETHARGY [None]
  - VOMITING [None]
